FAERS Safety Report 22170434 (Version 1)
Quarter: 2023Q2

REPORT INFORMATION
  Report Type: Spontaneous
  Country: DE (occurrence: DE)
  Receive Date: 20230404
  Receipt Date: 20230404
  Transmission Date: 20230721
  Serious: Yes (Other)
  Sender: FDA-Public Use
  Company Number: None

PATIENT
  Sex: Male
  Weight: 100 kg

DRUGS (3)
  1. ROSUVASTATIN [Suspect]
     Active Substance: ROSUVASTATIN
     Indication: Coronary artery disease
     Dosage: UNK
     Route: 048
     Dates: start: 2021
  2. ATORVASTATIN [Suspect]
     Active Substance: ATORVASTATIN
     Indication: Coronary artery disease
     Dosage: UNK
     Route: 048
     Dates: start: 2018, end: 2021
  3. EZETIMIBE [Suspect]
     Active Substance: EZETIMIBE
     Indication: Coronary artery disease
     Dosage: UNK
     Route: 048
     Dates: start: 2018, end: 2021

REACTIONS (3)
  - Blood creatine phosphokinase increased [Recovered/Resolved]
  - Dyspnoea [Recovered/Resolved]
  - Myalgia [Recovered/Resolved]
